FAERS Safety Report 9042253 (Version 1)
Quarter: 2013Q1

REPORT INFORMATION
  Report Type: Spontaneous
  Country: US (occurrence: US)
  Receive Date: 20130129
  Receipt Date: 20130129
  Transmission Date: 20140127
  Serious: No
  Sender: FDA-Public Use
  Company Number: US-ABBOTT-12P-163-0908188-00

PATIENT
  Age: 48 Year
  Sex: Female
  Weight: 68.1 kg

DRUGS (4)
  1. HUMIRA 40 MG/0.8 ML PEN [Suspect]
     Indication: CROHN^S DISEASE
     Dosage: (80MG)
     Dates: start: 20120222, end: 20120222
  2. SYNTHROID [Concomitant]
     Indication: HYPOTHYROIDISM
  3. FLUOXETINE [Concomitant]
     Indication: DEPRESSION
  4. FLONASE [Concomitant]
     Indication: HYPERSENSITIVITY
     Route: 045

REACTIONS (2)
  - Headache [Recovering/Resolving]
  - Injection site pain [Recovered/Resolved]
